FAERS Safety Report 18509102 (Version 1)
Quarter: 2020Q4

REPORT INFORMATION
  Report Type: Spontaneous
  Country: PK (occurrence: PK)
  Receive Date: 20201117
  Receipt Date: 20201117
  Transmission Date: 20210114
  Serious: Yes (Other)
  Sender: FDA-Public Use
  Company Number: PK-JNJFOC-20201125576

PATIENT

DRUGS (2)
  1. HYDROXYZINE HYDROCHLORIDE. [Interacting]
     Active Substance: HYDROXYZINE HYDROCHLORIDE
     Indication: PRODUCT USED FOR UNKNOWN INDICATION
     Dosage: UNK
     Route: 065
  2. CETIRIZINE HYDROCHLORIDE. [Suspect]
     Active Substance: CETIRIZINE HYDROCHLORIDE
     Indication: PRODUCT USED FOR UNKNOWN INDICATION
     Dosage: UNK
     Route: 065

REACTIONS (19)
  - Cardiac arrest [Unknown]
  - Angina pectoris [Unknown]
  - Drug interaction [Unknown]
  - Ventricular fibrillation [Unknown]
  - Hyperglycaemia [Unknown]
  - Electrocardiogram QT prolonged [Unknown]
  - Syncope [Unknown]
  - Overdose [Unknown]
  - Atrial fibrillation [Unknown]
  - Hypocalcaemia [Unknown]
  - Renal failure [Unknown]
  - Myocardial infarction [Unknown]
  - Hyponatraemia [Unknown]
  - Hypomagnesaemia [Unknown]
  - Torsade de pointes [Unknown]
  - Ventricular tachycardia [Unknown]
  - Bradycardia [Unknown]
  - Hepatic failure [Unknown]
  - Hypokalaemia [Unknown]
